FAERS Safety Report 22088421 (Version 4)
Quarter: 2023Q4

REPORT INFORMATION
  Report Type: Spontaneous
  Country: US (occurrence: US)
  Receive Date: 20230313
  Receipt Date: 20231106
  Transmission Date: 20240109
  Serious: No
  Sender: FDA-Public Use
  Company Number: US-PHARMAESSENTIA CORPORATION-US-2022-PEC-000976

PATIENT
  Sex: Male

DRUGS (11)
  1. BESREMI [Suspect]
     Active Substance: ROPEGINTERFERON ALFA-2B-NJFT
     Indication: Polycythaemia vera
     Dosage: 100 MCG, Q2W
     Route: 058
     Dates: start: 20221202
  2. BESREMI [Suspect]
     Active Substance: ROPEGINTERFERON ALFA-2B-NJFT
     Dosage: UNK
     Route: 065
  3. BESREMI [Suspect]
     Active Substance: ROPEGINTERFERON ALFA-2B-NJFT
     Dosage: UNK, MONTHLY
     Route: 065
  4. PRALUENT [Concomitant]
     Active Substance: ALIROCUMAB
     Indication: Cardiovascular event prophylaxis
     Dosage: ONCE EVERY OTHER WEEK
     Route: 065
  5. FLOMAX [Concomitant]
     Active Substance: TAMSULOSIN HYDROCHLORIDE
     Indication: Benign prostatic hyperplasia
     Dosage: UNK, QD
     Route: 065
  6. CIALIS [Concomitant]
     Active Substance: TADALAFIL
     Indication: Benign prostatic hyperplasia
     Dosage: 5 MG, QD
     Route: 065
  7. METOPROLOL [Concomitant]
     Active Substance: METOPROLOL
     Indication: Blood pressure measurement
     Dosage: UNK UNK, QD
     Route: 065
  8. ASPIRIN [Concomitant]
     Active Substance: ASPIRIN
     Indication: Blood disorder
     Dosage: 81 MG, QD
     Route: 065
  9. PANTOPRAZOLE [Concomitant]
     Active Substance: PANTOPRAZOLE
     Indication: Gastrooesophageal reflux disease
     Dosage: 20 MG, QD
     Route: 065
  10. FOLIC ACID [Concomitant]
     Active Substance: FOLIC ACID
     Indication: Supplementation therapy
     Dosage: UNK, QD
     Route: 065
  11. COLESTIPOL [Concomitant]
     Active Substance: COLESTIPOL
     Indication: Blood cholesterol
     Dosage: 2 TABLETS, QD
     Route: 065

REACTIONS (10)
  - Inappropriate schedule of product administration [Unknown]
  - Product distribution issue [Unknown]
  - Anger [Unknown]
  - Surgery [Unknown]
  - Off label use [Unknown]
  - Nocturia [Unknown]
  - Pollakiuria [Unknown]
  - Flushing [Not Recovered/Not Resolved]
  - Micturition urgency [Unknown]
  - Pruritus [Not Recovered/Not Resolved]

NARRATIVE: CASE EVENT DATE: 20221202
